FAERS Safety Report 8578262-9 (Version None)
Quarter: 2012Q3

REPORT INFORMATION
  Report Type: 
  Country: None (occurrence: None)
  Receive Date: 20120808
  Receipt Date: 20120731
  Transmission Date: 20120928
  Serious: Yes (Other)
  Sender: FDA-Public Use
  Company Number: US-BAYER-2012-078649

PATIENT
  Age: 25 Year
  Sex: Female
  Weight: 48.073 kg

DRUGS (19)
  1. OMEPRAZOLE [Concomitant]
     Dosage: 20 MG, QD
     Route: 048
     Dates: start: 20101213
  2. LISINOPRIL [Concomitant]
     Dosage: 20 MG, ONCE
  3. MORPHINE SULFATE [Concomitant]
     Indication: ABDOMINAL PAIN
     Dosage: UNK UNK, ONCE
     Dates: start: 20110206
  4. YAZ [Suspect]
  5. AMITRIPTYLINE HCL [Concomitant]
     Dosage: 50 MG, HS
  6. VITAMIN D [Concomitant]
     Dosage: UNK
  7. IBUPROFEN [Concomitant]
     Dosage: UNK UNK, PRN
  8. CLONAZEPAM [Concomitant]
     Dosage: 1 MG, TID
  9. CLONIDINE [Concomitant]
     Dosage: UNK UNK, PRN
  10. TRAZODONE HYDROCHLORIDE [Concomitant]
     Dosage: 50 MG, HS
  11. MULTI-VITAMIN [Concomitant]
  12. HYDROCODONE BITARTRATE [Concomitant]
     Dosage: UNK
  13. MAXALT [Concomitant]
     Indication: HEADACHE
     Dosage: 10 MG, UNK
  14. LEXAPRO [Concomitant]
     Dosage: 10 MG, QD
  15. VITAMIN B-12 [Concomitant]
     Dosage: UNK
  16. LOPERAMIDE [Concomitant]
  17. ZOFRAN [Concomitant]
     Indication: NAUSEA
     Dosage: UNK UNK, ONCE
     Dates: start: 20110206
  18. BENTYL [Concomitant]
     Dosage: 20 MG, QID
  19. METAMUCIL-2 [Concomitant]
     Dosage: UNK

REACTIONS (1)
  - PULMONARY EMBOLISM [None]
